FAERS Safety Report 5578955-1 (Version None)
Quarter: 2008Q1

REPORT INFORMATION
  Report Type: 
  Country: None (occurrence: None)
  Receive Date: 20080102
  Receipt Date: 20071207
  Transmission Date: 20080703
  Serious: No
  Sender: FDA-Public Use
  Company Number: US-BAYER-200712960BWH

PATIENT
  Sex: Female

DRUGS (1)
  1. CIPRO IV [Suspect]
     Indication: DRUG USE FOR UNKNOWN INDICATION
     Route: 042
     Dates: start: 20070801

REACTIONS (4)
  - INFUSION SITE ERYTHEMA [None]
  - INFUSION SITE REACTION [None]
  - INJECTION SITE STREAKING [None]
  - PRURITUS [None]
